FAERS Safety Report 9301916 (Version 1)
Quarter: 2013Q2

REPORT INFORMATION
  Report Type: Spontaneous
  Country: US (occurrence: US)
  Receive Date: 20130521
  Receipt Date: 20130521
  Transmission Date: 20140414
  Serious: Yes (Other)
  Sender: FDA-Public Use
  Company Number: US-PFIZER INC-2013151529

PATIENT
  Age: 67 Year
  Sex: Female
  Weight: 74.83 kg

DRUGS (6)
  1. LEVOXYL [Suspect]
     Indication: THYROID HORMONE REPLACEMENT THERAPY
     Dosage: 75MCG TABLET ONCE A DAY AND 25MCG THREE TIMES A WEEK
     Route: 048
     Dates: start: 2000
  2. VIVELLE-DOT [Concomitant]
     Dosage: 0.075 MG, UNK
  3. XANAX [Concomitant]
     Dosage: UNK
  4. VITAMIN C [Concomitant]
     Dosage: UNK
  5. MAGNESIUM [Concomitant]
     Dosage: UNK
  6. VITAMIN D [Concomitant]
     Dosage: UNK

REACTIONS (3)
  - Breast adenoma [Unknown]
  - Procedural pain [Unknown]
  - Weight decreased [Unknown]
